FAERS Safety Report 7707726-2 (Version None)
Quarter: 2011Q3

REPORT INFORMATION
  Report Type: 
  Country: None (occurrence: None)
  Receive Date: 20110824
  Receipt Date: 20110823
  Transmission Date: 20111222
  Serious: Yes (Hospitalization)
  Sender: FDA-Public Use
  Company Number: LB-ABBOTT-11P-093-0840896-00

PATIENT
  Age: 75 Year
  Sex: Male

DRUGS (2)
  1. HUMIRA [Suspect]
     Dates: end: 20110622
  2. HUMIRA [Suspect]
     Indication: CROHN'S DISEASE
     Dosage: 160/80 MG LOADING DOSE
     Route: 058
     Dates: start: 20101102, end: 20101102

REACTIONS (2)
  - HAEMATURIA [None]
  - ANURIA [None]
